FAERS Safety Report 4731863-8 (Version None)
Quarter: 2005Q3

REPORT INFORMATION
  Report Type: 
  Country: None (occurrence: None)
  Receive Date: 20050802
  Receipt Date: 20050802
  Transmission Date: 20060218
  Serious: Yes (Hospitalization)
  Sender: FDA-Public Use
  Company Number: None

PATIENT
  Age: 56 Year
  Sex: Female
  Weight: 89.8122 kg

DRUGS (2)
  1. IMATINIB 400MG [Suspect]
     Indication: THYMOMA MALIGNANT
     Dosage: 400MG BID ORAL
     Route: 048
     Dates: start: 20050703, end: 20050717
  2. ANASTRAZOLE [Concomitant]

REACTIONS (1)
  - ERYTHEMA MULTIFORME [None]
